FAERS Safety Report 19176462 (Version 1)
Quarter: 2021Q2

REPORT INFORMATION
  Report Type: Report from Study
  Country: None (occurrence: US)
  Receive Date: 20210423
  Receipt Date: 20210423
  Transmission Date: 20210717
  Serious: Yes (Other)
  Sender: FDA-Public Use
  Company Number: US-ABBVIE-21K-163-3869857-00

PATIENT
  Age: 44 Year
  Sex: Female

DRUGS (1)
  1. CREON [Suspect]
     Active Substance: PANCRELIPASE AMYLASE\PANCRELIPASE LIPASE\PANCRELIPASE PROTEASE
     Indication: PRODUCT USED FOR UNKNOWN INDICATION
     Route: 048

REACTIONS (9)
  - Abdominal distension [Unknown]
  - Pancreatic failure [Unknown]
  - Fracture [Unknown]
  - Hysterosalpingo-oophorectomy [Unknown]
  - Hysterectomy [Unknown]
  - Abdominal operation [Unknown]
  - Diarrhoea [Unknown]
  - Female sterilisation [Unknown]
  - Fracture [Unknown]

NARRATIVE: CASE EVENT DATE: 1998
